FAERS Safety Report 23995689 (Version 1)
Quarter: 2024Q2

REPORT INFORMATION
  Report Type: Report from Study
  Country: US (occurrence: US)
  Receive Date: 20240620
  Receipt Date: 20240620
  Transmission Date: 20240715
  Serious: Yes (Other)
  Sender: FDA-Public Use
  Company Number: US-ABBVIE-5804162

PATIENT
  Age: 72 Year
  Sex: Female

DRUGS (1)
  1. SKYRIZI [Suspect]
     Active Substance: RISANKIZUMAB-RZAA
     Indication: Psoriasis
     Route: 058
     Dates: start: 20220602

REACTIONS (4)
  - Dry eye [Unknown]
  - Inflammation [Recovering/Resolving]
  - Urticaria [Recovering/Resolving]
  - Scratch [Unknown]

NARRATIVE: CASE EVENT DATE: 20220602
